FAERS Safety Report 10841085 (Version 1)
Quarter: 2015Q1

REPORT INFORMATION
  Report Type: Report from Study
  Country: US (occurrence: US)
  Receive Date: 20150220
  Receipt Date: 20150220
  Transmission Date: 20150721
  Serious: No
  Sender: FDA-Public Use
  Company Number: US-ABBVIE-14P-163-1237869-00

PATIENT
  Age: 24 Year
  Sex: Female
  Weight: 63.11 kg

DRUGS (8)
  1. PREDNISONE. [Concomitant]
     Active Substance: PREDNISONE
     Indication: PRODUCT USED FOR UNKNOWN INDICATION
     Dosage: TWO TABS DAILY/1 WEEK, DECREASE TO 1 TAB DAILY/1 WEEK, THEN 1/2 TAB DAILY/1 WEEK
     Route: 048
     Dates: start: 20140124, end: 20140130
  2. HUMIRA [Suspect]
     Active Substance: ADALIMUMAB
     Indication: CROHN^S DISEASE
     Route: 058
     Dates: start: 2011, end: 20130301
  3. ASACOL HD [Concomitant]
     Active Substance: MESALAMINE
     Indication: PRODUCT USED FOR UNKNOWN INDICATION
     Dosage: 1 TAB (800 MG)  2 TAB (1600 MG)
     Route: 048
     Dates: start: 20111227
  4. PREDNISONE. [Concomitant]
     Active Substance: PREDNISONE
     Dosage: TWO TABS DAILY/1 WEEK, DECREASE TO 1 TAB DAILY/1 WEEK, THEN 1/2 TAB DAILY/1 WEEK
     Route: 048
     Dates: start: 20140131, end: 20140206
  5. HUMIRA [Suspect]
     Active Substance: ADALIMUMAB
     Route: 058
     Dates: start: 20130301
  6. AZATHIOPRINE. [Concomitant]
     Active Substance: AZATHIOPRINE
     Dosage: ONE TABLET
     Route: 048
     Dates: start: 20140404
  7. PREDNISONE. [Concomitant]
     Active Substance: PREDNISONE
     Dosage: 1/2 TAB DAILY/1 WEEK
     Route: 048
     Dates: start: 20140207, end: 20140213
  8. AZATHIOPRINE. [Concomitant]
     Active Substance: AZATHIOPRINE
     Indication: PRODUCT USED FOR UNKNOWN INDICATION
     Dosage: ONE TABLET
     Route: 048
     Dates: start: 20120712, end: 20140404

REACTIONS (10)
  - Pelvic fluid collection [Unknown]
  - Large intestinal ulcer [Unknown]
  - Renal cyst [Unknown]
  - Congenital cystic kidney disease [Unknown]
  - Gastrooesophageal reflux disease [Unknown]
  - Colitis [Unknown]
  - Smear cervix abnormal [Unknown]
  - Thiopurine methyltransferase [Unknown]
  - Hypertension [Recovered/Resolved]
  - Gastric mucosal hypertrophy [Unknown]

NARRATIVE: CASE EVENT DATE: 20121025
